FAERS Safety Report 4677428-8 (Version None)
Quarter: 2005Q2

REPORT INFORMATION
  Report Type: 
  Country: None (occurrence: None)
  Receive Date: 20050531
  Receipt Date: 20050107
  Transmission Date: 20051028
  Serious: Yes (Hospitalization)
  Sender: FDA-Public Use
  Company Number: JP-BOEHRINGER INGELHEIM PHARMACEUTICALS, INC.-2005-BP-00220NB

PATIENT
  Sex: Male
  Weight: 74 kg

DRUGS (5)
  1. BI-SIFROL TABLETS [Suspect]
     Indication: PARKINSONISM
     Route: 048
     Dates: start: 20050104, end: 20050106
  2. MENESIT [Concomitant]
     Indication: PARKINSONISM
     Route: 048
     Dates: start: 20040909
  3. NAUZELIN [Concomitant]
     Indication: GASTRITIS
     Route: 048
     Dates: start: 20041014
  4. TANATRIL (IMIDAPRIL HYDROCHLORIDE) [Concomitant]
     Indication: HYPERTENSION
     Route: 048
     Dates: start: 20020819
  5. ADALAT [Concomitant]
     Indication: HYPERTENSION
     Route: 048
     Dates: start: 20020819

REACTIONS (3)
  - BLOOD PRESSURE INCREASED [None]
  - DEPRESSED LEVEL OF CONSCIOUSNESS [None]
  - DISORIENTATION [None]
